FAERS Safety Report 9548492 (Version 2)
Quarter: 2013Q3

REPORT INFORMATION
  Report Type: Spontaneous
  Country: US (occurrence: US)
  Receive Date: 20130924
  Receipt Date: 20130924
  Transmission Date: 20140515
  Serious: Yes (Other)
  Sender: FDA-Public Use
  Company Number: US-ENDO PHARMACEUTICALS INC.-OPCR20130266

PATIENT
  Sex: Male

DRUGS (5)
  1. OPANA ER [Suspect]
     Indication: BACK PAIN
     Route: 048
  2. OPANA ER [Suspect]
     Indication: PAIN IN EXTREMITY
     Route: 048
  3. OXYMORPHONE [Concomitant]
     Indication: BREAKTHROUGH PAIN
     Route: 048
  4. OPANA ER 30MG [Concomitant]
     Indication: BACK PAIN
     Route: 048
  5. OPANA ER 30MG [Concomitant]
     Indication: PAIN IN EXTREMITY

REACTIONS (3)
  - Intentional drug misuse [Unknown]
  - Wrong technique in drug usage process [Unknown]
  - Drug effect delayed [Not Recovered/Not Resolved]
